FAERS Safety Report 9666184 (Version 1)
Quarter: 2013Q4

REPORT INFORMATION
  Report Type: Spontaneous
  Country: US (occurrence: US)
  Receive Date: 20131104
  Receipt Date: 20131104
  Transmission Date: 20140711
  Serious: No
  Sender: FDA-Public Use
  Company Number: US-BIOGENIDEC-2013BI103306

PATIENT
  Age: 41 Year
  Sex: Female

DRUGS (3)
  1. AVONEX [Suspect]
     Indication: MULTIPLE SCLEROSIS
     Route: 030
     Dates: start: 20131014
  2. AVONEX [Suspect]
     Indication: MULTIPLE SCLEROSIS
     Route: 030
     Dates: start: 20131021
  3. LORATAB [Concomitant]
     Indication: PAIN

REACTIONS (11)
  - Migraine [Recovered/Resolved]
  - Muscle twitching [Not Recovered/Not Resolved]
  - Photopsia [Recovered/Resolved]
  - Dysgeusia [Not Recovered/Not Resolved]
  - Tongue ulceration [Not Recovered/Not Resolved]
  - Stomatitis [Not Recovered/Not Resolved]
  - Influenza like illness [Recovered/Resolved]
  - Pyrexia [Recovered/Resolved]
  - Chills [Recovered/Resolved]
  - Muscle spasms [Recovered/Resolved]
  - Pain [Recovered/Resolved]
